FAERS Safety Report 4558186-4 (Version None)
Quarter: 2005Q1

REPORT INFORMATION
  Report Type: 
  Country: None (occurrence: None)
  Receive Date: 20050107
  Receipt Date: 20040325
  Transmission Date: 20050727
  Serious: No
  Sender: FDA-Public Use
  Company Number: 04P-163-0254941-00

PATIENT
  Sex: Male

DRUGS (2)
  1. OMNICEF [Suspect]
     Indication: ACUTE SINUSITIS
     Dates: start: 20040201, end: 20040301
  2. INTRAVENOUS ANTIBIOTICS [Concomitant]

REACTIONS (2)
  - DYSPNOEA [None]
  - URTICARIA [None]
